FAERS Safety Report 9582323 (Version 1)
Quarter: 2013Q4

REPORT INFORMATION
  Report Type: Spontaneous
  Country: US (occurrence: US)
  Receive Date: 20131002
  Receipt Date: 20131002
  Transmission Date: 20140711
  Serious: No
  Sender: FDA-Public Use
  Company Number: US-AMGEN-USASP2013039819

PATIENT
  Age: 63 Year
  Sex: Female
  Weight: 68.03 kg

DRUGS (5)
  1. ENBREL [Suspect]
     Indication: PRODUCT USED FOR UNKNOWN INDICATION
     Dosage: 50 MG, QWK
     Route: 058
  2. METHYLPRED [Concomitant]
     Dosage: 4 MG, UNK
  3. SLEEP AID                          /00000402/ [Concomitant]
     Dosage: 50 MG, UNK
  4. VITAMIN D3 [Concomitant]
     Dosage: 400 UNITS
  5. FOLIC ACID [Concomitant]
     Dosage: UNK

REACTIONS (1)
  - Pain in extremity [Unknown]
